FAERS Safety Report 19715719 (Version 1)
Quarter: 2021Q3

REPORT INFORMATION
  Report Type: Spontaneous
  Country: US (occurrence: US)
  Receive Date: 20210818
  Receipt Date: 20210818
  Transmission Date: 20211014
  Serious: No
  Sender: FDA-Public Use
  Company Number: US-ORPHANEU-2020004761

PATIENT

DRUGS (1)
  1. CYSTADROPS [Suspect]
     Active Substance: CYSTEAMINE HYDROCHLORIDE
     Indication: CYSTINOSIS
     Dosage: 1 DROP IN EACH EYE,FOUR TIMES DAILY

REACTIONS (4)
  - Eye irritation [Recovered/Resolved]
  - Blindness transient [Unknown]
  - Eye pain [Recovered/Resolved]
  - Eye discharge [Unknown]
